FAERS Safety Report 19938350 (Version 3)
Quarter: 2022Q3

REPORT INFORMATION
  Report Type: Spontaneous
  Country: US (occurrence: US)
  Receive Date: 20211011
  Receipt Date: 20220911
  Transmission Date: 20221027
  Serious: No
  Sender: FDA-Public Use
  Company Number: US-SA-SAC20211007001175

PATIENT
  Age: 39 Year
  Sex: Female

DRUGS (1)
  1. DUPIXENT [Suspect]
     Active Substance: DUPILUMAB
     Indication: Dermatitis atopic
     Dosage: 300 MG, QOW
     Route: 058
     Dates: start: 20210805

REACTIONS (6)
  - Ocular hyperaemia [Unknown]
  - Swelling of eyelid [Unknown]
  - Injection site mass [Unknown]
  - Injection site scab [Recovered/Resolved]
  - Injection site pruritus [Unknown]
  - Injection site reaction [Unknown]

NARRATIVE: CASE EVENT DATE: 20210101
